FAERS Safety Report 6675534-X (Version None)
Quarter: 2010Q2

REPORT INFORMATION
  Report Type: 
  Country: None (occurrence: None)
  Receive Date: 20100409
  Receipt Date: 20100405
  Transmission Date: 20101027
  Serious: Yes (Other)
  Sender: FDA-Public Use
  Company Number: US-BAYER-201013907BCC

PATIENT
  Age: 29 Year
  Sex: Female

DRUGS (2)
  1. ALEVE (CAPLET) [Suspect]
     Indication: DRUG USE FOR UNKNOWN INDICATION
     Dosage: TOTAL DAILY DOSE: 220 MG  UNIT DOSE: 220 MG
     Route: 048
  2. VOLTAREN [Suspect]
     Indication: TENDONITIS
     Dosage: TOTAL DAILY DOSE: 12  G
     Route: 061
     Dates: start: 20100304, end: 20100309

REACTIONS (4)
  - DIARRHOEA [None]
  - DIZZINESS [None]
  - DIZZINESS POSTURAL [None]
  - NAUSEA [None]
